FAERS Safety Report 23904129 (Version 2)
Quarter: 2024Q2

REPORT INFORMATION
  Report Type: Spontaneous
  Country: US (occurrence: US)
  Receive Date: 20240527
  Receipt Date: 20240621
  Transmission Date: 20240716
  Serious: No
  Sender: FDA-Public Use
  Company Number: US-UCBSA-2024023676

PATIENT
  Sex: Female
  Weight: 78.08 kg

DRUGS (12)
  1. NEUPRO [Suspect]
     Active Substance: ROTIGOTINE
     Indication: Product used for unknown indication
     Dosage: 2 MILLIGRAM 1 PATCH PER 24 HOURS
     Route: 062
  2. MYRBETRIQ [Concomitant]
     Active Substance: MIRABEGRON
     Indication: Urge incontinence
     Dosage: 25 MILLIGRAM IN MORNING
     Dates: start: 20211027
  3. LISINOPRIL [Concomitant]
     Active Substance: LISINOPRIL
     Indication: Blood pressure abnormal
     Dosage: 10 MILLIGRAM IN MORNING
  4. SERTRALINE [Concomitant]
     Active Substance: SERTRALINE HYDROCHLORIDE
     Indication: Antidepressant therapy
     Dosage: 150 MILLIGRAM IN EVENING
     Dates: start: 20201110
  5. MOMETASONE [Concomitant]
     Active Substance: MOMETASONE
     Indication: Skin disorder
     Dosage: 0.10 PERCENT AS NEEDED
     Dates: start: 20201110
  6. HYDROCORTISONE [Concomitant]
     Active Substance: HYDROCORTISONE\HYDROCORTISONE ACETATE
     Indication: Pruritus
     Dosage: 2.50 PERCENT AS NEEDED
     Dates: start: 20201110
  7. DICLOFENAC SODIUM [Concomitant]
     Active Substance: DICLOFENAC\DICLOFENAC SODIUM
     Indication: Arthralgia
     Dosage: 1% GEL 100 GRAM
     Dates: start: 20201110
  8. GABAPENTIN [Concomitant]
     Active Substance: GABAPENTIN
     Indication: Pain
     Dosage: 100 MILLIGRAM AS NEEDED
     Dates: start: 20220314
  9. CALCIUM\VITAMIN D [Concomitant]
     Active Substance: CALCIUM\VITAMIN D
     Indication: Osteoporosis
     Dosage: AM/PM
  10. ONE A DAY VITACRAVES [Concomitant]
     Indication: Product used for unknown indication
     Dosage: IN MORNING
  11. MAGNESIUM L-THREONATE [Concomitant]
     Indication: Sleep disorder
     Dosage: 2000 MILLIGRAM IN EVENING
  12. TYLENOL [Concomitant]
     Active Substance: ACETAMINOPHEN
     Indication: Pain
     Dosage: 300/30 AS NEEDED

REACTIONS (2)
  - Product adhesion issue [Unknown]
  - Product dose omission issue [Unknown]

NARRATIVE: CASE EVENT DATE: 20240101
